FAERS Safety Report 6578421-0 (Version None)
Quarter: 2010Q1

REPORT INFORMATION
  Report Type: 
  Country: None (occurrence: None)
  Receive Date: 20100211
  Receipt Date: 20100128
  Transmission Date: 20100710
  Serious: No
  Sender: FDA-Public Use
  Company Number: US-JNJFOC-20100200642

PATIENT
  Sex: Male
  Weight: 104.33 kg

DRUGS (11)
  1. DURAGESIC-100 [Suspect]
     Indication: COMPLEX REGIONAL PAIN SYNDROME
     Route: 062
  2. DURAGESIC-100 [Suspect]
     Dosage: NDC#: 50458-094-05
     Route: 062
  3. CYMBALTA [Concomitant]
     Indication: DEPRESSION
     Route: 048
  4. METHADONE HCL [Concomitant]
     Indication: COMPLEX REGIONAL PAIN SYNDROME
     Route: 048
  5. MORPHINE [Concomitant]
     Indication: COMPLEX REGIONAL PAIN SYNDROME
     Route: 048
  6. OXYCODONE HCL [Concomitant]
     Indication: COMPLEX REGIONAL PAIN SYNDROME
     Route: 048
  7. XANAX [Concomitant]
     Indication: COMPLEX REGIONAL PAIN SYNDROME
     Route: 048
  8. VALIUM [Concomitant]
     Indication: ANXIETY
     Route: 048
  9. LYRICA [Concomitant]
     Indication: COMPLEX REGIONAL PAIN SYNDROME
     Route: 048
  10. KEPPRA [Concomitant]
     Indication: COMPLEX REGIONAL PAIN SYNDROME
     Route: 048
  11. CELEXA [Concomitant]
     Indication: DEPRESSION
     Route: 048

REACTIONS (2)
  - PRODUCT ADHESION ISSUE [None]
  - WRONG TECHNIQUE IN DRUG USAGE PROCESS [None]
